FAERS Safety Report 12951100 (Version 1)
Quarter: 2016Q4

REPORT INFORMATION
  Report Type: Spontaneous
  Country: US (occurrence: US)
  Receive Date: 20161117
  Receipt Date: 20161117
  Transmission Date: 20170207
  Serious: Yes (Death)
  Sender: FDA-Public Use
  Company Number: US-PFIZER INC-2016534987

PATIENT
  Age: 72 Year
  Sex: Female

DRUGS (1)
  1. REVATIO [Suspect]
     Active Substance: SILDENAFIL CITRATE

REACTIONS (4)
  - Colitis [Fatal]
  - Pneumonia [Fatal]
  - Post procedural complication [Fatal]
  - Septic shock [Fatal]

NARRATIVE: CASE EVENT DATE: 2016
